FAERS Safety Report 9406372 (Version 2)
Quarter: 2013Q3

REPORT INFORMATION
  Report Type: Spontaneous
  Country: ES (occurrence: ES)
  Receive Date: 20130718
  Receipt Date: 20130723
  Transmission Date: 20140515
  Serious: Yes (Other)
  Sender: FDA-Public Use
  Company Number: ES-AMGEN-ESPSP2013049272

PATIENT
  Age: 66 Year
  Sex: Female

DRUGS (4)
  1. PROLIA [Suspect]
     Indication: OSTEOPOROSIS POSTMENOPAUSAL
     Dosage: UNK
     Dates: start: 201210
  2. CO-DIOVAN [Concomitant]
     Indication: HYPERTENSION
     Dosage: UNK UNK, QD
  3. ATORVASTATIN [Concomitant]
     Indication: HYPERCHOLESTEROLAEMIA
     Dosage: 40 MG, UNK
  4. OSTEOPOR                           /00615501/ [Concomitant]
     Dosage: 830 MG, UNK

REACTIONS (3)
  - Urinary tract infection [Not Recovered/Not Resolved]
  - Stomatitis [Recovered/Resolved]
  - Paraesthesia [Not Recovered/Not Resolved]
